FAERS Safety Report 5939355-5 (Version None)
Quarter: 2008Q4

REPORT INFORMATION
  Report Type: 
  Country: None (occurrence: None)
  Receive Date: 20081103
  Receipt Date: 20081028
  Transmission Date: 20090506
  Serious: No
  Sender: FDA-Public Use
  Company Number: US-B.I. PHARMACEUTICALS,INC./RIDGEFIELD-2008-BP-14813BP

PATIENT
  Age: 79 Year
  Sex: Female

DRUGS (1)
  1. FLOMAX [Suspect]
     Dates: start: 19980101

REACTIONS (3)
  - DRUG INEFFECTIVE [None]
  - NOCTURIA [None]
  - POLLAKIURIA [None]
